FAERS Safety Report 9749939 (Version 2)
Quarter: 2013Q4

REPORT INFORMATION
  Report Type: Spontaneous
  Country: US (occurrence: US)
  Receive Date: 20131212
  Receipt Date: 20131212
  Transmission Date: 20140711
  Serious: Yes (Hospitalization, Other)
  Sender: FDA-Public Use
  Company Number: US-TAKEDA-TPA2013A03009

PATIENT
  Sex: 0

DRUGS (4)
  1. ULORIC [Suspect]
     Indication: HYPERURICAEMIA
     Dosage: 40 MG, QD
     Route: 048
     Dates: start: 201004, end: 201304
  2. ULORIC [Suspect]
     Indication: GOUT
  3. COLCRYS [Suspect]
     Indication: GOUT
     Dosage: 0.6 MG, UNK
     Route: 048
     Dates: end: 20130402
  4. NORCO [Concomitant]
     Indication: PAIN

REACTIONS (4)
  - Sepsis [Not Recovered/Not Resolved]
  - Cellulitis [Not Recovered/Not Resolved]
  - Local swelling [Not Recovered/Not Resolved]
  - Gout [Not Recovered/Not Resolved]
